APPROVED DRUG PRODUCT: HYDROXYZINE HYDROCHLORIDE
Active Ingredient: HYDROXYZINE HYDROCHLORIDE
Strength: 50MG/ML
Dosage Form/Route: INJECTABLE;INJECTION
Application: A087408 | Product #002
Applicant: AMERICAN REGENT INC
Approved: Approved Prior to Jan 1, 1982 | RLD: Yes | RS: Yes | Type: RX